FAERS Safety Report 9407737 (Version 1)
Quarter: 2013Q3

REPORT INFORMATION
  Report Type: Spontaneous
  Country: IT (occurrence: IT)
  Receive Date: 20130718
  Receipt Date: 20130718
  Transmission Date: 20140515
  Serious: Yes (Hospitalization)
  Sender: FDA-Public Use
  Company Number: IT-B.I. PHARMACEUTICALS,INC./RIDGEFIELD-2013-IT-00399IT

PATIENT
  Age: 81 Year
  Sex: Male

DRUGS (4)
  1. TAMSULOSIN HYDROCHLORIDE [Suspect]
     Indication: BENIGN PROSTATIC HYPERPLASIA
     Dosage: 0.4 MG
     Route: 048
     Dates: start: 20130101, end: 20130617
  2. CLOX [Concomitant]
  3. MIRAPEXIN [Concomitant]
  4. ESOMEPRAZOLE SODIUM [Concomitant]

REACTIONS (3)
  - Multiple fractures [Unknown]
  - Orthostatic hypotension [Unknown]
  - Syncope [Unknown]
